FAERS Safety Report 11374663 (Version 1)
Quarter: 2015Q3

REPORT INFORMATION
  Report Type: Spontaneous
  Country: FR (occurrence: FR)
  Receive Date: 20150813
  Receipt Date: 20150813
  Transmission Date: 20151125
  Serious: Yes (Hospitalization)
  Sender: FDA-Public Use
  Company Number: FR-009507513-1508FRA004580

PATIENT
  Age: 57 Year
  Sex: Female

DRUGS (6)
  1. AVASTIN [Suspect]
     Active Substance: BEVACIZUMAB
     Dosage: 575 MG, UNK
     Route: 042
     Dates: start: 20150429, end: 20150612
  2. TEMODAL [Suspect]
     Active Substance: TEMOZOLOMIDE
     Dosage: TOTAL DAILY DOSE 240MG
     Route: 048
     Dates: start: 20150513
  3. TEMODAL [Suspect]
     Active Substance: TEMOZOLOMIDE
     Dosage: TOTAL DAILY DOSE 240MG
     Route: 048
     Dates: start: 20150529, end: 20150611
  4. TEMODAL [Suspect]
     Active Substance: TEMOZOLOMIDE
     Dosage: TOTAL DAILY DOSE 240MG
     Route: 048
     Dates: start: 20150429
  5. TEMODAL [Suspect]
     Active Substance: TEMOZOLOMIDE
     Dosage: TOTAL DAILY DOSE 240MG
     Route: 048
     Dates: start: 201406
  6. TEMODAL [Suspect]
     Active Substance: TEMOZOLOMIDE
     Dosage: TOTAL DAILY DOSE 240MG
     Route: 048
     Dates: start: 201409

REACTIONS (4)
  - Thrombocytopenia [Recovering/Resolving]
  - Leukopenia [Recovering/Resolving]
  - Haemolytic anaemia [Recovering/Resolving]
  - Neutropenia [Recovering/Resolving]

NARRATIVE: CASE EVENT DATE: 20150625
